FAERS Safety Report 13093367 (Version 1)
Quarter: 2017Q1

REPORT INFORMATION
  Report Type: Spontaneous
  Country: US (occurrence: US)
  Receive Date: 20170105
  Receipt Date: 20170105
  Transmission Date: 20170428
  Serious: No
  Sender: FDA-Public Use
  Company Number: None

PATIENT
  Age: 54 Year
  Sex: Female

DRUGS (1)
  1. COSENTYX [Suspect]
     Active Substance: SECUKINUMAB
     Indication: PSORIATIC ARTHROPATHY
     Dosage: ONCE WEEKLY FOR 5 WEEKS
     Route: 058
     Dates: start: 201610, end: 201611

REACTIONS (3)
  - Malaise [None]
  - Nasopharyngitis [None]
  - Therapy cessation [None]
